FAERS Safety Report 9590238 (Version 2)
Quarter: 2013Q4

REPORT INFORMATION
  Report Type: Spontaneous
  Country: US (occurrence: US)
  Receive Date: 20131003
  Receipt Date: 20131003
  Transmission Date: 20140711
  Serious: Yes (Hospitalization)
  Sender: FDA-Public Use
  Company Number: US-AMGEN-USASP2012073583

PATIENT
  Age: 62 Year
  Sex: Female
  Weight: 83.67 kg

DRUGS (6)
  1. ENBREL [Suspect]
     Indication: RHEUMATOID ARTHRITIS
     Dosage: 50 MG, QWK
     Route: 058
     Dates: start: 20060925
  2. HYZAAR [Concomitant]
     Indication: HYPERTENSION
     Dosage: 100/25, QD
     Route: 048
     Dates: start: 1997
  3. VERAPAMIL [Concomitant]
     Indication: HYPERTENSION
     Dosage: 25 UNK, BID
     Route: 048
     Dates: start: 1998
  4. METHOTREXATE [Concomitant]
     Indication: RHEUMATOID ARTHRITIS
     Dosage: 25 UNK, QWK
     Route: 048
     Dates: start: 2006
  5. ZOLPIDEM [Concomitant]
     Indication: INSOMNIA
     Dosage: 5 UNK, AT NIGHT
     Route: 048
     Dates: start: 2010
  6. OXYBUTIN [Concomitant]
     Dosage: 10 G, BID
     Route: 048
     Dates: start: 2010

REACTIONS (3)
  - Bronchitis [Recovered/Resolved]
  - Pneumonia [Recovered/Resolved]
  - Rheumatoid arthritis [Not Recovered/Not Resolved]
